FAERS Safety Report 8596179-0 (Version None)
Quarter: 2012Q3

REPORT INFORMATION
  Report Type: 
  Country: None (occurrence: None)
  Receive Date: 20120815
  Receipt Date: 20120809
  Transmission Date: 20120928
  Serious: Yes (Hospitalization)
  Sender: FDA-Public Use
  Company Number: US-GLAXOSMITHKLINE-A0988831A

PATIENT
  Age: 46 Year
  Sex: Female
  Weight: 55.3 kg

DRUGS (2)
  1. LAPATINIB [Suspect]
     Indication: NEOPLASM
     Route: 048
     Dates: start: 20120712
  2. GEMZAR [Suspect]
     Indication: NEOPLASM
     Dosage: 1000MGM2 PER DAY
     Route: 042
     Dates: start: 20120726

REACTIONS (2)
  - VOMITING [None]
  - DEHYDRATION [None]
